FAERS Safety Report 8988478 (Version 1)
Quarter: 2012Q4

REPORT INFORMATION
  Report Type: Spontaneous
  Country: US (occurrence: None)
  Receive Date: 20121224
  Receipt Date: 20121224
  Transmission Date: 20130627
  Serious: Yes (Disabling)
  Sender: FDA-Public Use
  Company Number: None

PATIENT
  Age: 78 Year
  Sex: Female

DRUGS (2)
  1. ZICAM EXTREME CONGESTION RELIEF 0.50FL/OZ/5ML ZICZAM UC SCOTTSDALE, AZ [Suspect]
     Indication: SNEEZING
     Dosage: 1 puff 2x daily Nasal
     Route: 045
     Dates: start: 20121124, end: 20121127
  2. ZICAM EXTREME CONGESTION RELIEF 0.50FL/OZ/5ML ZICZAM UC SCOTTSDALE, AZ [Suspect]
     Indication: RUNNY NOSE
     Dosage: 1 puff 2x daily Nasal
     Route: 045
     Dates: start: 20121124, end: 20121127

REACTIONS (2)
  - Ear discomfort [None]
  - Hypoacusis [None]
